FAERS Safety Report 9301011 (Version 1)
Quarter: 2013Q2

REPORT INFORMATION
  Report Type: Spontaneous
  Country: US (occurrence: US)
  Receive Date: 20130521
  Receipt Date: 20130521
  Transmission Date: 20140414
  Serious: No
  Sender: FDA-Public Use
  Company Number: US-PFIZER INC-2013154483

PATIENT
  Age: 47 Year
  Sex: Female
  Weight: 77.1 kg

DRUGS (2)
  1. CHANTIX [Suspect]
     Indication: SMOKING CESSATION THERAPY
     Dosage: 0.5 MG, DAILY
     Dates: start: 20130511, end: 20130513
  2. CHANTIX [Suspect]
     Dosage: 0.5 MG, 2X/DAY
     Dates: start: 20130514

REACTIONS (2)
  - Fatigue [Not Recovered/Not Resolved]
  - Somnolence [Recovering/Resolving]
